FAERS Safety Report 6731828-0 (Version None)
Quarter: 2010Q2

REPORT INFORMATION
  Report Type: 
  Country: None (occurrence: None)
  Receive Date: 20100519
  Receipt Date: 20100507
  Transmission Date: 20101027
  Serious: Yes (Disabling, Other)
  Sender: FDA-Public Use
  Company Number: PHEH2009US15015

PATIENT
  Sex: Male
  Weight: 101.4 kg

DRUGS (12)
  1. EXJADE [Suspect]
     Indication: MULTIPLE MYELOMA
     Dosage: 2000 MG, DAILY
     Route: 048
     Dates: start: 20091021
  2. EXJADE [Suspect]
     Indication: MYELODYSPLASTIC SYNDROME
     Dosage: 1000 MG DAILY
     Route: 048
  3. EXJADE [Suspect]
     Indication: IRON OVERLOAD
     Dosage: 500 MG DAILY
     Route: 048
     Dates: end: 20100121
  4. GLIMEPIRIDE [Concomitant]
     Indication: DIABETES MELLITUS
     Dosage: 2 MG, TID
     Route: 048
     Dates: start: 20091002
  5. ACTOS [Concomitant]
     Indication: DIABETES MELLITUS
     Dosage: 15 MG, BID
     Route: 048
     Dates: start: 20091001
  6. LISINOPRIL [Concomitant]
     Indication: HYPERTENSION
     Dosage: 10 MG, QD
     Route: 048
     Dates: start: 20091001
  7. OMEPRAZOLE [Concomitant]
     Dosage: 20 MG, QD
     Route: 048
     Dates: start: 20091001
  8. ISOSORBIDE MONONITRATE [Concomitant]
  9. ACETYLSALICYLIC ACID [Concomitant]
     Dosage: 81 MG DAILY
     Route: 048
  10. METOPROLOL TARTRATE [Concomitant]
     Indication: BLOOD PRESSURE
     Dosage: 25 MG DAILY
     Route: 048
  11. ISOSORBIDE [Concomitant]
     Indication: ANGINA PECTORIS
     Dosage: 30 MG, PRN
     Route: 048
  12. LOVASTATIN [Concomitant]
     Indication: BLOOD PRESSURE
     Dosage: 40 MG DAILY
     Route: 048

REACTIONS (5)
  - ABDOMINAL PAIN UPPER [None]
  - BACK PAIN [None]
  - BLOOD CULTURE POSITIVE [None]
  - MALAISE [None]
  - NAUSEA [None]
